FAERS Safety Report 6316817-2 (Version None)
Quarter: 2009Q3

REPORT INFORMATION
  Report Type: 
  Country: None (occurrence: None)
  Receive Date: 20090820
  Receipt Date: 20090813
  Transmission Date: 20100115
  Serious: No
  Sender: FDA-Public Use
  Company Number: US-ROCHE-641063

PATIENT
  Sex: Female

DRUGS (1)
  1. ISOTRETINOIN [Suspect]
     Indication: DRUG USE FOR UNKNOWN INDICATION
     Dosage: DISPENSED 40 MG CAP ON 24OCT07,26NOV07,21DEC07,06FEB08,25JUN08,13AUG08,01OCT08,19JUN09.
     Route: 065
     Dates: end: 20090624

REACTIONS (2)
  - NO ADVERSE EVENT [None]
  - PREGNANCY [None]
